FAERS Safety Report 16184218 (Version 2)
Quarter: 2021Q2

REPORT INFORMATION
  Report Type: Spontaneous
  Country: US (occurrence: US)
  Receive Date: 20190411
  Receipt Date: 20210409
  Transmission Date: 20210716
  Serious: No
  Sender: FDA-Public Use
  Company Number: US-ALKEM LABORATORIES LIMITED-US-ALKEM-2018-10939

PATIENT
  Age: 57 Year
  Sex: Male

DRUGS (2)
  1. QUETIAPINE FUMARATE. [Suspect]
     Active Substance: QUETIAPINE FUMARATE
     Indication: PRODUCT USED FOR UNKNOWN INDICATION
     Dosage: 400 UNK, QD
     Route: 065
  2. ATAZANAVIR?RITONAVIR [Interacting]
     Active Substance: ATAZANAVIR\RITONAVIR
     Indication: ANTIRETROVIRAL THERAPY
     Dosage: 100 UNK, QD
     Route: 065

REACTIONS (3)
  - Weight increased [Recovered/Resolved]
  - Drug interaction [Unknown]
  - Blood glucose increased [Recovered/Resolved]
